FAERS Safety Report 17043388 (Version 1)
Quarter: 2019Q4

REPORT INFORMATION
  Report Type: Spontaneous
  Country: JP (occurrence: JP)
  Receive Date: 20191118
  Receipt Date: 20191118
  Transmission Date: 20200122
  Serious: Yes (Death, Other)
  Sender: FDA-Public Use
  Company Number: JP-009507513-1911JPN001022J

PATIENT
  Age: 62 Year
  Sex: Male

DRUGS (2)
  1. PREVYMIS [Suspect]
     Active Substance: LETERMOVIR
     Indication: ANTIVIRAL PROPHYLAXIS
     Dosage: UNK
     Route: 048
     Dates: start: 20191001, end: 20191101
  2. PREVYMIS [Suspect]
     Active Substance: LETERMOVIR
     Indication: ANTIVIRAL PROPHYLAXIS
     Dosage: 480 MILLIGRAM, QD
     Route: 041
     Dates: start: 20191102, end: 20191107

REACTIONS (2)
  - Death [Fatal]
  - Dysphagia [Unknown]

NARRATIVE: CASE EVENT DATE: 2019
